FAERS Safety Report 5797737-9 (Version None)
Quarter: 2008Q2

REPORT INFORMATION
  Report Type: 
  Country: None (occurrence: None)
  Receive Date: 20080630
  Receipt Date: 20080619
  Transmission Date: 20081010
  Serious: Yes (Hospitalization)
  Sender: FDA-Public Use
  Company Number: S08-USA-02133-01

PATIENT
  Age: 69 Year
  Sex: Female
  Weight: 58.9676 kg

DRUGS (3)
  1. THYROID TAB [Suspect]
     Indication: HYPOTHYROIDISM
     Dosage: 120 MG QD PO
     Route: 048
     Dates: start: 19780101
  2. THYROID TAB [Suspect]
     Indication: THYROIDECTOMY
     Dosage: 120 MG QD PO
     Route: 048
     Dates: start: 19780101
  3. VALIUM [Concomitant]

REACTIONS (10)
  - COMA [None]
  - DRUG INEFFECTIVE [None]
  - DYSPEPSIA [None]
  - ENZYME ABNORMALITY [None]
  - OSTEOARTHRITIS [None]
  - PNEUMONIA [None]
  - RHEUMATOID ARTHRITIS [None]
  - VOMITING [None]
  - WEIGHT DECREASED [None]
  - WRONG TECHNIQUE IN DRUG USAGE PROCESS [None]
